FAERS Safety Report 7366266-3 (Version None)
Quarter: 2011Q1

REPORT INFORMATION
  Report Type: 
  Country: None (occurrence: None)
  Receive Date: 20110317
  Receipt Date: 20110317
  Transmission Date: 20110831
  Serious: Yes (Hospitalization)
  Sender: FDA-Public Use
  Company Number: None

PATIENT
  Sex: Male
  Weight: 115 kg

DRUGS (2)
  1. TOPOTECAN [Suspect]
     Dosage: 19 MG
     Dates: end: 20091006
  2. CARBOPLATIN [Suspect]
     Dosage: 1800 MG
     Dates: end: 20091006

REACTIONS (2)
  - ATRIAL FIBRILLATION [None]
  - CARDIAC FAILURE CONGESTIVE [None]
